FAERS Safety Report 8520687-1 (Version None)
Quarter: 2012Q3

REPORT INFORMATION
  Report Type: 
  Country: None (occurrence: None)
  Receive Date: 20120709
  Receipt Date: 20090724
  Transmission Date: 20120928
  Serious: No
  Sender: FDA-Public Use
  Company Number: 2009AP003053

PATIENT
  Age: 72 Year
  Sex: Female

DRUGS (3)
  1. ACETYLSALICYLIC ACID SRT [Concomitant]
  2. CARVEDILOL [Concomitant]
  3. DILTIAZEM HYDROCHLORIDE [Suspect]
     Indication: HYPERTENSION
     Dosage: 120 MG;QD;PO
     Route: 048
     Dates: start: 20090717, end: 20090727

REACTIONS (6)
  - CARDIAC DISORDER [None]
  - CONDITION AGGRAVATED [None]
  - EOSINOPHIL COUNT INCREASED [None]
  - RASH PRURITIC [None]
  - SKIN LESION [None]
  - INSOMNIA [None]
